FAERS Safety Report 15628708 (Version 1)
Quarter: 2018Q4

REPORT INFORMATION
  Report Type: Spontaneous
  Country: DK (occurrence: DK)
  Receive Date: 20181116
  Receipt Date: 20181116
  Transmission Date: 20190205
  Serious: Yes (Life-Threatening)
  Sender: FDA-Public Use
  Company Number: DK-TEVA-2018-DK-975306

PATIENT
  Age: 66 Year
  Sex: Male
  Weight: 92 kg

DRUGS (3)
  1. SIFROL [Concomitant]
     Active Substance: PRAMIPEXOLE
     Indication: RESTLESS LEGS SYNDROME
     Dosage: .09 MILLIGRAM DAILY; STYRKE: 0,088 MG.
     Route: 048
     Dates: start: 20121119
  2. METFORMIN [Concomitant]
     Active Substance: METFORMIN HYDROCHLORIDE
     Indication: TYPE 2 DIABETES MELLITUS
     Dosage: 2550 MILLIGRAM DAILY; STYRKE: 850 MG.
     Route: 048
     Dates: start: 20170719
  3. ATORVASTATIN ^TEVA^ [Suspect]
     Active Substance: ATORVASTATIN
     Indication: HYPERCHOLESTEROLAEMIA
     Dosage: 40 MILLIGRAM DAILY; STYRKE: 40 MG.
     Route: 048
     Dates: start: 20170719, end: 201809

REACTIONS (3)
  - Necrotising myositis [Recovering/Resolving]
  - Tracheostomy [Recovering/Resolving]
  - General physical health deterioration [Unknown]

NARRATIVE: CASE EVENT DATE: 20180801
